FAERS Safety Report 12368268 (Version 1)
Quarter: 2016Q2

REPORT INFORMATION
  Report Type: Spontaneous
  Country: TW (occurrence: TW)
  Receive Date: 20160513
  Receipt Date: 20160513
  Transmission Date: 20160815
  Serious: Yes (Hospitalization)
  Sender: FDA-Public Use
  Company Number: TW-UNICHEM LABORATORIES LIMITED-UCM201605-000076

PATIENT
  Age: 56 Year
  Sex: Female

DRUGS (3)
  1. LAMOTRIGINE TABLETS [Suspect]
     Active Substance: LAMOTRIGINE
  2. DIVALPROEX SODIUM. [Suspect]
     Active Substance: DIVALPROEX SODIUM
  3. QUETIAPINE. [Suspect]
     Active Substance: QUETIAPINE

REACTIONS (4)
  - Drug interaction [Unknown]
  - Stevens-Johnson syndrome [Recovered/Resolved]
  - Thrombocytopenia [Recovered/Resolved]
  - Neutropenia [Recovered/Resolved]
